FAERS Safety Report 17684251 (Version 2)
Quarter: 2020Q2

REPORT INFORMATION
  Report Type: Report from Study
  Country: AU (occurrence: AU)
  Receive Date: 20200420
  Receipt Date: 20200507
  Transmission Date: 20200714
  Serious: Yes (Hospitalization, Other)
  Sender: FDA-Public Use
  Company Number: PHHY2018AU096105

PATIENT
  Age: 9 Year
  Sex: Female
  Weight: 33 kg

DRUGS (4)
  1. TRAMETINIB [Suspect]
     Active Substance: TRAMETINIB
     Dosage: 0.5 MG, QD
     Route: 048
  2. DABRAFENIB [Suspect]
     Active Substance: DABRAFENIB
     Indication: ASTROCYTOMA
     Dosage: 75 MG, BID
     Route: 048
  3. DABRAFENIB [Suspect]
     Active Substance: DABRAFENIB
     Indication: GLIOMA
  4. TRAMETINIB [Suspect]
     Active Substance: TRAMETINIB
     Indication: ASTROCYTOMA
     Dosage: 1 MG, QD
     Route: 048
     Dates: start: 20180911

REACTIONS (13)
  - Foot fracture [Recovered/Resolved]
  - Localised infection [Unknown]
  - Drug resistance [Unknown]
  - Pneumonia mycoplasmal [Recovered/Resolved]
  - Malignant neoplasm progression [Unknown]
  - Pyrexia [Unknown]
  - Decreased appetite [Unknown]
  - Cough [Unknown]
  - Pneumonia [Recovered/Resolved]
  - Listless [Unknown]
  - Embolism [Recovered/Resolved]
  - Ingrowing nail [Unknown]
  - Astrocytoma [Unknown]

NARRATIVE: CASE EVENT DATE: 20190104
